FAERS Safety Report 13541933 (Version 1)
Quarter: 2017Q2

REPORT INFORMATION
  Report Type: Spontaneous
  Country: US (occurrence: US)
  Receive Date: 20170512
  Receipt Date: 20170512
  Transmission Date: 20170830
  Serious: No
  Sender: FDA-Public Use
  Company Number: US-BIOMARINAP-US-2017-113953

PATIENT
  Age: 7 Year

DRUGS (1)
  1. ALDURAZYME [Suspect]
     Active Substance: LARONIDASE
     Indication: MUCOPOLYSACCHARIDOSIS I
     Dosage: UNK
     Route: 041
     Dates: start: 20131009

REACTIONS (2)
  - Vascular access site haemorrhage [Unknown]
  - Poor venous access [Unknown]

NARRATIVE: CASE EVENT DATE: 20170504
